FAERS Safety Report 7404992-8 (Version None)
Quarter: 2011Q2

REPORT INFORMATION
  Report Type: 
  Country: None (occurrence: None)
  Receive Date: 20110411
  Receipt Date: 20110329
  Transmission Date: 20111010
  Serious: Yes (Hospitalization, Other)
  Sender: FDA-Public Use
  Company Number: US-RANBAXY-2011RR-43570

PATIENT
  Sex: Male
  Weight: 79.5 kg

DRUGS (4)
  1. LEVAQUIN [Suspect]
     Indication: URINARY TRACT INFECTION
  2. CEFPROZIL [Concomitant]
     Indication: URINARY TRACT INFECTION
  3. CIPROFLOXACIN [Suspect]
     Indication: URINARY TRACT INFECTION
     Route: 065
  4. LEVAQUIN [Suspect]
     Indication: CYSTITIS
     Dosage: UNK
     Route: 048
     Dates: start: 20080320, end: 20080327

REACTIONS (2)
  - TENDON RUPTURE [None]
  - TENDON DISORDER [None]
